FAERS Safety Report 4661573-7 (Version None)
Quarter: 2005Q2

REPORT INFORMATION
  Report Type: 
  Country: None (occurrence: None)
  Receive Date: 20050513
  Receipt Date: 20050329
  Transmission Date: 20051028
  Serious: Yes (Hospitalization)
  Sender: FDA-Public Use
  Company Number: GR-MERCK-0503GRC00011

PATIENT
  Age: 68 Year
  Sex: Male
  Weight: 96 kg

DRUGS (7)
  1. ZETIA [Suspect]
     Indication: HYPERCHOLESTEROLAEMIA
     Route: 048
     Dates: start: 20040801, end: 20050401
  2. DILTIAZEM HYDROCHLORIDE [Concomitant]
     Indication: CORONARY ARTERY DISEASE
     Route: 048
     Dates: start: 19990101
  3. ASPIRIN [Concomitant]
     Indication: CORONARY ARTERY DISEASE
     Route: 048
     Dates: start: 19990101
  4. IRBESARTAN [Concomitant]
     Indication: HYPERTENSION
     Route: 048
     Dates: start: 20040101
  5. UBIDECARENONE [Concomitant]
     Indication: NEUROPATHY PERIPHERAL
     Route: 065
  6. PRAVASTATIN SODIUM [Concomitant]
     Indication: HYPERCHOLESTEROLAEMIA
     Route: 048
     Dates: start: 20050120, end: 20050216
  7. PHYTOSTEROLS [Concomitant]
     Indication: HYPERCHOLESTEROLAEMIA
     Route: 048
     Dates: start: 20040301

REACTIONS (1)
  - NEUROPATHY PERIPHERAL [None]
